FAERS Safety Report 9033493 (Version 1)
Quarter: 2013Q1

REPORT INFORMATION
  Report Type: Spontaneous
  Country: RU (occurrence: RU)
  Receive Date: 20130128
  Receipt Date: 20130128
  Transmission Date: 20140127
  Serious: Yes (Death)
  Sender: FDA-Public Use
  Company Number: RU-BAYER-2013-007924

PATIENT
  Age: 45 Year
  Sex: Male

DRUGS (1)
  1. ULTRAVIST [Suspect]
     Indication: COMPUTERISED TOMOGRAM
     Dosage: 8 ML, UNK
     Dates: start: 20121130

REACTIONS (9)
  - Convulsion [Fatal]
  - Acute respiratory failure [Fatal]
  - Brain oedema [Fatal]
  - Circulatory collapse [Fatal]
  - Renal failure acute [Fatal]
  - Cardiac arrest [Fatal]
  - Epilepsy [Fatal]
  - Convulsion [Fatal]
  - Anaphylactic shock [Fatal]
